FAERS Safety Report 4342764-1 (Version None)
Quarter: 2004Q2

REPORT INFORMATION
  Report Type: 
  Country: None (occurrence: None)
  Receive Date: 20040416
  Receipt Date: 20040402
  Transmission Date: 20050107
  Serious: Yes (Hospitalization)
  Sender: FDA-Public Use
  Company Number: 2004-UK-00331UK

PATIENT
  Age: 73 Year
  Sex: Female

DRUGS (6)
  1. PERSANTIN [Suspect]
     Indication: NEPHRITIS
     Dosage: 150 MG    PO
     Route: 048
     Dates: start: 20001012, end: 20030204
  2. LOCHOL (FLUVASTATIN SODIUM) (NR) [Suspect]
     Indication: HYPERCHOLESTEROLAEMIA
     Dosage: 10 MG    PO
     Route: 048
     Dates: start: 20001214
  3. COVERSYL (PERINDOPRIL) [Concomitant]
  4. PREDNISOLONE [Concomitant]
  5. PREDNISOLONE [Concomitant]
  6. ALLOPURINOL TAB [Concomitant]

REACTIONS (1)
  - GENITAL HAEMORRHAGE [None]
